FAERS Safety Report 15126624 (Version 1)
Quarter: 2018Q3

REPORT INFORMATION
  Report Type: Spontaneous
  Country: US (occurrence: US)
  Receive Date: 20180710
  Receipt Date: 20180710
  Transmission Date: 20181010
  Serious: Yes (Other)
  Sender: FDA-Public Use
  Company Number: US-PFIZER INC-2018268185

PATIENT
  Sex: Female

DRUGS (1)
  1. PREPARATION H RAPID RELIEF [Suspect]
     Active Substance: GLYCERIN\LIDOCAINE
     Dosage: UNK

REACTIONS (2)
  - Haemorrhage [Unknown]
  - Incorrect route of drug administration [Unknown]

NARRATIVE: CASE EVENT DATE: 2018
